FAERS Safety Report 6316002-4 (Version None)
Quarter: 2009Q3

REPORT INFORMATION
  Report Type: 
  Country: None (occurrence: None)
  Receive Date: 20090820
  Receipt Date: 20081112
  Transmission Date: 20100115
  Serious: No
  Sender: FDA-Public Use
  Company Number: US-KINGPHARMUSA00001-K200801301

PATIENT
  Sex: Female
  Weight: 74.376 kg

DRUGS (4)
  1. CYTOMEL [Suspect]
     Indication: THYROID DISORDER
     Dosage: 1/2 OF A 25 MCG TABLET 12.5 MCG QD
     Route: 048
     Dates: start: 20081030
  2. CYTOMEL [Suspect]
     Dosage: 25 MCG, QD
     Route: 048
     Dates: start: 20080901
  3. CYTOMEL [Suspect]
     Dosage: 10 TO 15 MCG, QD
     Route: 048
     Dates: start: 20071201
  4. CYTOMEL [Suspect]
     Dosage: 4 MCG, QD
     Route: 048

REACTIONS (4)
  - GOITRE [None]
  - HUNGER [None]
  - SENSATION OF FOREIGN BODY [None]
  - TRI-IODOTHYRONINE INCREASED [None]
